FAERS Safety Report 5354659-5 (Version None)
Quarter: 2007Q2

REPORT INFORMATION
  Report Type: 
  Country: None (occurrence: None)
  Receive Date: 20070612
  Receipt Date: 20070601
  Transmission Date: 20071010
  Serious: Yes (Other)
  Sender: FDA-Public Use
  Company Number: US-AMGEN-US227709

PATIENT
  Sex: Female
  Weight: 49.5 kg

DRUGS (6)
  1. PROCRIT [Suspect]
     Indication: ANAEMIA
     Route: 065
     Dates: start: 19960101, end: 20070101
  2. LIPITOR [Concomitant]
     Dates: start: 20050101
  3. ZETIA [Concomitant]
     Dates: start: 20060101
  4. BISOPROLOL FUMARATE [Concomitant]
     Dates: start: 20020101
  5. CARDURA [Concomitant]
     Dates: start: 19960101
  6. ALDACTONE [Concomitant]
     Dates: start: 19960101

REACTIONS (2)
  - AORTIC ANEURYSM [None]
  - FLUID RETENTION [None]
